FAERS Safety Report 17117481 (Version 1)
Quarter: 2019Q4

REPORT INFORMATION
  Report Type: Spontaneous
  Country: NL (occurrence: NL)
  Receive Date: 20191205
  Receipt Date: 20191205
  Transmission Date: 20200122
  Serious: Yes (Life-Threatening)
  Sender: FDA-Public Use
  Company Number: NL-MYLANLABS-2019M1119163

PATIENT
  Sex: Male

DRUGS (4)
  1. FUROSEMIDE. [Suspect]
     Active Substance: FUROSEMIDE
     Indication: PRODUCT USED FOR UNKNOWN INDICATION
     Dosage: 2, UNK, QD (80 OT, BID)
     Route: 065
  2. CARVEDILOL SANDOZ [Suspect]
     Active Substance: CARVEDILOL
     Indication: PRODUCT USED FOR UNKNOWN INDICATION
     Dosage: 100 MILLIGRAM, QD (50 MG, BID)
     Route: 065
  3. CARVEDILOL SANDOZ [Suspect]
     Active Substance: CARVEDILOL
     Dosage: 50 MILLIGRAM, QD (25 MG, BID)
     Route: 065
  4. FUROSEMIDE. [Suspect]
     Active Substance: FUROSEMIDE
     Dosage: 2, UNK, QD (40 OT, BID)
     Route: 065

REACTIONS (1)
  - Cardiac failure [Unknown]
